FAERS Safety Report 7371356-5 (Version None)
Quarter: 2011Q1

REPORT INFORMATION
  Report Type: 
  Country: None (occurrence: None)
  Receive Date: 20110324
  Receipt Date: 20110316
  Transmission Date: 20110831
  Serious: Yes (Death, Other)
  Sender: FDA-Public Use
  Company Number: US-BAXTER-2011BH005869

PATIENT
  Sex: Female

DRUGS (1)
  1. DIANEAL [Suspect]
     Indication: PERITONEAL DIALYSIS
     Route: 033
     Dates: end: 20110304

REACTIONS (4)
  - MULTI-ORGAN FAILURE [None]
  - SEPTIC SHOCK [None]
  - OSTEOMYELITIS [None]
  - DIABETES MELLITUS [None]
